FAERS Safety Report 7287315-7 (Version None)
Quarter: 2011Q1

REPORT INFORMATION
  Report Type: 
  Country: None (occurrence: None)
  Receive Date: 20110211
  Receipt Date: 20110131
  Transmission Date: 20110831
  Serious: Yes (Hospitalization)
  Sender: FDA-Public Use
  Company Number: CA-JNJFOC-20110200899

PATIENT
  Sex: Female
  Weight: 60 kg

DRUGS (4)
  1. COUMADIN [Concomitant]
     Indication: PULMONARY EMBOLISM
     Route: 065
  2. SYNTHROID [Concomitant]
     Route: 065
  3. REMICADE [Suspect]
     Indication: COLITIS ULCERATIVE
     Route: 042
  4. IMURAN [Concomitant]
     Route: 065

REACTIONS (4)
  - BODY TEMPERATURE INCREASED [None]
  - DIARRHOEA [None]
  - HAEMOGLOBIN DECREASED [None]
  - GASTROINTESTINAL HAEMORRHAGE [None]
